FAERS Safety Report 9885295 (Version 1)
Quarter: 2014Q1

REPORT INFORMATION
  Report Type: Spontaneous
  Country: US (occurrence: US)
  Receive Date: 20140210
  Receipt Date: 20140210
  Transmission Date: 20141002
  Serious: No
  Sender: FDA-Public Use
  Company Number: US-PFIZER INC-2014033415

PATIENT
  Age: 54 Year
  Sex: Female
  Weight: 79.82 kg

DRUGS (2)
  1. RAPAMUNE [Suspect]
     Indication: NEOPLASM
     Dosage: 4 MG, DAILY
     Route: 048
     Dates: start: 20140110
  2. XARELTO [Concomitant]
     Indication: ANTICOAGULANT THERAPY
     Dosage: 20 MG, DAILY

REACTIONS (1)
  - Stomatitis [Not Recovered/Not Resolved]
